FAERS Safety Report 8613112 (Version 3)
Quarter: 2012Q4

REPORT INFORMATION
  Report Type: 
  Country: US (occurrence: US)
  Receive Date: 20120613
  Receipt Date: 20121211
  Transmission Date: 20130627
  Serious: Yes (Hospitalization, Other)
  Sender: FDA-Public Use
  Company Number: US-US-EMD SERONO, INC.-7138290

PATIENT
  Age: 63 None
  Sex: Female
  Weight: 108 kg

DRUGS (3)
  1. REBIF [Suspect]
     Indication: MULTIPLE SCLEROSIS
     Route: 058
     Dates: start: 20111201
  2. HUMALOG [Concomitant]
     Indication: DIABETES MELLITUS
     Dates: start: 2008
  3. LYRICA [Concomitant]
     Indication: MUSCLE SPASTICITY
     Dates: end: 20120605

REACTIONS (7)
  - Hepatic cirrhosis [Recovering/Resolving]
  - Urinary tract infection [Recovering/Resolving]
  - White blood cell count decreased [Unknown]
  - Weight increased [Unknown]
  - Tremor [Not Recovered/Not Resolved]
  - Vitamin D deficiency [Unknown]
  - Injection site erythema [Recovering/Resolving]
